FAERS Safety Report 8893060 (Version 1)
Quarter: 2012Q4

REPORT INFORMATION
  Report Type: Spontaneous
  Country: US (occurrence: None)
  Receive Date: 20121106
  Receipt Date: 20121106
  Transmission Date: 20130627
  Serious: Yes (Hospitalization)
  Sender: FDA-Public Use
  Company Number: None

PATIENT
  Age: 61 Year
  Sex: Female
  Weight: 110.7 kg

DRUGS (11)
  1. ERIBULIN [Suspect]
     Dosage: 1.1 mg/m2  d1,8 x 3 weeks IV
     Route: 042
     Dates: start: 20120830, end: 20121025
  2. CARBOPLATIN [Suspect]
     Dosage: AUC 5 q3 weeks x 4 IV
     Route: 042
     Dates: start: 20120830, end: 20121025
  3. CYMBALTA [Concomitant]
  4. ABILIFY [Concomitant]
  5. SEROQUEL -QUETIAPINE- [Concomitant]
  6. LUNESTA -ESZOPICLONE- [Concomitant]
  7. NORCO SPIRONOLACTONE [Concomitant]
  8. SYNTHROID [Concomitant]
  9. SOMA [Concomitant]
  10. POTASSIUM [Concomitant]
  11. NEUPOGEN [Concomitant]

REACTIONS (2)
  - Hypotension [None]
  - Urosepsis [None]
